FAERS Safety Report 20071396 (Version 1)
Quarter: 2021Q4

REPORT INFORMATION
  Report Type: Spontaneous
  Country: AR (occurrence: AR)
  Receive Date: 20211115
  Receipt Date: 20211115
  Transmission Date: 20220303
  Serious: Yes (Other)
  Sender: FDA-Public Use
  Company Number: AR-PFIZER INC-202101539288

PATIENT
  Age: 73 Year
  Sex: Male

DRUGS (1)
  1. ENBREL [Suspect]
     Active Substance: ETANERCEPT
     Indication: Rheumatoid arthritis
     Dosage: 50 MG, WEEKLY
     Route: 065
     Dates: start: 20180921

REACTIONS (6)
  - Rheumatoid arthritis [Not Recovered/Not Resolved]
  - Colon cancer [Not Recovered/Not Resolved]
  - Malaise [Not Recovered/Not Resolved]
  - Swelling [Not Recovered/Not Resolved]
  - Arthropathy [Not Recovered/Not Resolved]
  - Single functional kidney [Not Recovered/Not Resolved]
